FAERS Safety Report 10953983 (Version 1)
Quarter: 2015Q1

REPORT INFORMATION
  Report Type: Spontaneous
  Country: US (occurrence: None)
  Receive Date: 20150226
  Receipt Date: 20150226
  Transmission Date: 20150721
  Serious: Yes (Hospitalization)
  Sender: FDA-Public Use
  Company Number: TPA2010A01890

PATIENT
  Sex: Male

DRUGS (2)
  1. ULORIC [Suspect]
     Active Substance: FEBUXOSTAT
     Indication: GOUT
     Dates: end: 201003
  2. MERCAPTOPURINE (MERCATOPURINE) [Suspect]
     Active Substance: MERCAPTOPURINE
     Dates: end: 201003

REACTIONS (3)
  - Dyspnoea [None]
  - Asthenia [None]
  - Red blood cell count decreased [None]
